FAERS Safety Report 19212923 (Version 2)
Quarter: 2021Q2

REPORT INFORMATION
  Report Type: Report from Study
  Country: AR (occurrence: AR)
  Receive Date: 20210504
  Receipt Date: 20210522
  Transmission Date: 20210717
  Serious: Yes (Other)
  Sender: FDA-Public Use
  Company Number: NVSC2021AR096700

PATIENT
  Age: 72 Year
  Sex: Male

DRUGS (1)
  1. COSENTYX [Suspect]
     Active Substance: SECUKINUMAB
     Indication: PSORIASIS
     Dosage: 300 MG, QMO
     Route: 058
     Dates: start: 20171108

REACTIONS (4)
  - Infarction [Unknown]
  - Cerebrovascular accident [Recovering/Resolving]
  - Aphasia [Unknown]
  - Overweight [Unknown]

NARRATIVE: CASE EVENT DATE: 202012
